FAERS Safety Report 12172758 (Version 6)
Quarter: 2016Q4

REPORT INFORMATION
  Report Type: Spontaneous
  Country: ES (occurrence: ES)
  Receive Date: 20160311
  Receipt Date: 20161101
  Transmission Date: 20170207
  Serious: Yes (Hospitalization, Other)
  Sender: FDA-Public Use
  Company Number: ES-GILEAD-2016-0201390

PATIENT
  Age: 13 Year
  Sex: Female

DRUGS (2)
  1. CAYSTON [Suspect]
     Active Substance: AZTREONAM
     Indication: CYSTIC FIBROSIS
     Dosage: UNK
     Route: 045
  2. CAYSTON [Suspect]
     Active Substance: AZTREONAM
     Dosage: UNK
     Route: 048

REACTIONS (8)
  - Haemoptysis [Unknown]
  - Sinusitis [Unknown]
  - Stomatitis [Unknown]
  - Wrong device used [Unknown]
  - Off label use [Not Recovered/Not Resolved]
  - Bronchiectasis [Unknown]
  - Nasal discomfort [Unknown]
  - Throat irritation [Unknown]
